FAERS Safety Report 7690754-3 (Version None)
Quarter: 2011Q3

REPORT INFORMATION
  Report Type: 
  Country: None (occurrence: None)
  Receive Date: 20110816
  Receipt Date: 20110816
  Transmission Date: 20111222
  Serious: Yes (Life-Threatening, Other)
  Sender: FDA-Public Use
  Company Number: None

PATIENT
  Sex: Female
  Weight: 64.4108 kg

DRUGS (3)
  1. METOPROLOL SUCCINATE [Suspect]
     Indication: BLOOD PRESSURE
     Dosage: 1 TAB TWICE A DAY
     Dates: start: 20070409, end: 20080412
  2. ALPRAZOLAM [Suspect]
     Indication: COLON CANCER
     Dosage: 1MG 3 X A DAY
     Dates: start: 20100107, end: 20100307
  3. ALPRAZOLAM [Suspect]
     Indication: STRESS
     Dosage: 1MG 3 X A DAY
     Dates: start: 20100107, end: 20100307

REACTIONS (4)
  - NEOPLASM MALIGNANT [None]
  - PRODUCT SUBSTITUTION ISSUE [None]
  - DRUG INEFFECTIVE [None]
  - RASH [None]
